FAERS Safety Report 7565687-3 (Version None)
Quarter: 2011Q2

REPORT INFORMATION
  Report Type: 
  Country: None (occurrence: None)
  Receive Date: 20110623
  Receipt Date: 20100617
  Transmission Date: 20111010
  Serious: No
  Sender: FDA-Public Use
  Company Number: US-MUTUAL PHARMACEUTICAL COMPANY, INC.-1-23089192

PATIENT
  Sex: Male
  Weight: 108.96 kg

DRUGS (4)
  1. BENADRYL [Concomitant]
  2. METOCLOPRAMIDE [Suspect]
     Route: 065
     Dates: start: 20070601, end: 20100101
  3. CYMBALTA, (DULOXETINE HYDROCHLORIDE), LANSOPRAZOLE [Concomitant]
  4. REGLAN [Suspect]
     Route: 065
     Dates: start: 20070601, end: 20100101

REACTIONS (4)
  - EXTRAPYRAMIDAL DISORDER [None]
  - INCORRECT DRUG ADMINISTRATION DURATION [None]
  - DYSKINESIA [None]
  - EMOTIONAL DISORDER [None]
